FAERS Safety Report 20457786 (Version 4)
Quarter: 2022Q3

REPORT INFORMATION
  Report Type: Report from Study
  Country: US (occurrence: US)
  Receive Date: 20220210
  Receipt Date: 20220917
  Transmission Date: 20221027
  Serious: Yes (Hospitalization, Other)
  Sender: FDA-Public Use
  Company Number: NVSC2022US029278

PATIENT
  Sex: Male

DRUGS (3)
  1. ENTRESTO [Suspect]
     Active Substance: SACUBITRIL\VALSARTAN
     Indication: Product used for unknown indication
     Dosage: 1 DOSAGE FORM, BID (49/51 MG)
     Route: 048
     Dates: start: 2021
  2. COREG [Suspect]
     Active Substance: CARVEDILOL
     Indication: Product used for unknown indication
     Dosage: UNK
     Route: 065
  3. COREG [Suspect]
     Active Substance: CARVEDILOL
     Dosage: 0.5 DOSAGE FORM, UNKNOWN
     Route: 065

REACTIONS (7)
  - Cerebrovascular accident [Unknown]
  - Tongue paralysis [Unknown]
  - Cardiac failure [Recovering/Resolving]
  - Dyspnoea [Not Recovered/Not Resolved]
  - Swelling [Not Recovered/Not Resolved]
  - Weight fluctuation [Unknown]
  - Dizziness [Recovering/Resolving]
